FAERS Safety Report 17233366 (Version 2)
Quarter: 2020Q1

REPORT INFORMATION
  Report Type: Spontaneous
  Country: DE (occurrence: DE)
  Receive Date: 20200104
  Receipt Date: 20200122
  Transmission Date: 20200409
  Serious: Yes (Hospitalization)
  Sender: FDA-Public Use
  Company Number: DE-TEVA-2019-DE-1161145

PATIENT
  Age: 71 Year
  Sex: Female

DRUGS (2)
  1. DICLOFENAC [Suspect]
     Active Substance: DICLOFENAC
     Route: 065
     Dates: start: 20191003
  2. CANDESARTAN-1A PHARMA 8MG [Concomitant]
     Dosage: 8 MILLIGRAM DAILY;

REACTIONS (2)
  - Asthenia [Unknown]
  - Haematochezia [Unknown]
